FAERS Safety Report 11362839 (Version 1)
Quarter: 2015Q3

REPORT INFORMATION
  Report Type: Spontaneous
  Country: US (occurrence: None)
  Receive Date: 20150807
  Receipt Date: 20150807
  Transmission Date: 20151125
  Serious: Yes (Hospitalization)
  Sender: FDA-Public Use
  Company Number: None

PATIENT
  Age: 62 Year
  Sex: Male
  Weight: 90.9 kg

DRUGS (1)
  1. CARBOPLATIN. [Suspect]
     Active Substance: CARBOPLATIN
     Indication: NEOPLASM MALIGNANT
     Route: 042
     Dates: start: 20121226, end: 20130130

REACTIONS (5)
  - Cough [None]
  - Dyspnoea [None]
  - Wheezing [None]
  - Anaphylactic reaction [None]
  - Flushing [None]

NARRATIVE: CASE EVENT DATE: 20130130
